FAERS Safety Report 6765345-9 (Version None)
Quarter: 2010Q2

REPORT INFORMATION
  Report Type: 
  Country: None (occurrence: None)
  Receive Date: 20100611
  Receipt Date: 20100604
  Transmission Date: 20101027
  Serious: Yes (Other)
  Sender: FDA-Public Use
  Company Number: US-JNJFOC-20100602332

PATIENT
  Sex: Male
  Weight: 92.08 kg

DRUGS (8)
  1. FENTANYL [Suspect]
     Indication: BACK PAIN
     Route: 062
  2. OXYCODONE [Concomitant]
     Indication: BREAKTHROUGH PAIN
     Route: 048
  3. OXYCONTIN [Concomitant]
     Indication: BREAKTHROUGH PAIN
     Route: 048
  4. LEXAPRO [Concomitant]
     Indication: CONVULSION
     Route: 048
  5. SYNTHROID [Concomitant]
     Indication: THYROID DISORDER
     Route: 048
  6. VERAPAMIL [Concomitant]
     Indication: HYPERTENSION
     Route: 048
  7. XANAX [Concomitant]
     Indication: ANXIETY
     Route: 048
  8. XANAX [Concomitant]
     Indication: NERVOUSNESS
     Route: 048

REACTIONS (8)
  - APPLICATION SITE RASH [None]
  - DEPENDENT PERSONALITY DISORDER [None]
  - HEPATITIS C [None]
  - LAZINESS [None]
  - LETHARGY [None]
  - LOSS OF LIBIDO [None]
  - SLEEP DISORDER [None]
  - WEIGHT INCREASED [None]
